FAERS Safety Report 9558357 (Version 3)
Quarter: 2013Q4

REPORT INFORMATION
  Report Type: Report from Study
  Country: BR (occurrence: BR)
  Receive Date: 20130926
  Receipt Date: 20131028
  Transmission Date: 20140711
  Serious: Yes (Other)
  Sender: FDA-Public Use
  Company Number: PHHY2013BR107460

PATIENT
  Age: 57 Year
  Sex: Female

DRUGS (4)
  1. DIOVAN [Suspect]
     Indication: HYPERTENSION
     Dosage: 1 DF (160MG VALS), PER DAY
  2. DIOVAN [Suspect]
     Dosage: 320 MG, DAILY
     Route: 048
  3. PURAN T4 [Concomitant]
     Indication: THYROID DISORDER
     Dosage: 100 UNK, DAILY
     Route: 048
  4. MODURETIC [Concomitant]
     Indication: BLOOD PRESSURE ABNORMAL
     Dosage: 25 MG, DAILY
     Route: 048

REACTIONS (6)
  - Retinal detachment [Recovering/Resolving]
  - Vision blurred [Recovering/Resolving]
  - Eye disorder [Unknown]
  - Retinal degeneration [Recovering/Resolving]
  - Blood pressure increased [Recovering/Resolving]
  - Blood pressure inadequately controlled [Recovered/Resolved]
